FAERS Safety Report 16942195 (Version 2)
Quarter: 2020Q1

REPORT INFORMATION
  Report Type: Spontaneous
  Country: DE (occurrence: DE)
  Receive Date: 20191021
  Receipt Date: 20200103
  Transmission Date: 20200409
  Serious: Yes (Hospitalization)
  Sender: FDA-Public Use
  Company Number: DE-MYLANLABS-2019M1099147

PATIENT
  Sex: Male

DRUGS (6)
  1. TOPIRAMAT [Concomitant]
     Active Substance: TOPIRAMATE
     Dosage: UNK, QD
  2. IBUPROFEN. [Concomitant]
     Active Substance: IBUPROFEN
     Dosage: 1-0-0
  3. NOVAMIN                            /00013301/ [Concomitant]
     Active Substance: PROCHLORPERAZINE
     Dosage: 2 GRAM, ONCE
     Route: 042
  4. MINITRANS 5; 5MG/24 H, TRANSDERMALES PFLASTER [Suspect]
     Active Substance: NITROGLYCERIN
     Indication: CORONARY ARTERY DISEASE
     Dosage: 1-0-0
     Route: 062
  5. COPALIA [Concomitant]
     Active Substance: AMLODIPINE BESYLATE\VALSARTAN
     Dosage: UNK
  6. NEUROTRAT FORTE                    /07501901/ [Concomitant]
     Dosage: AS NEEDED

REACTIONS (7)
  - Pyrexia [Recovered/Resolved]
  - Tachycardia [Recovered/Resolved]
  - Disturbance in attention [Recovered/Resolved]
  - Contraindicated product administered [Unknown]
  - Infection [Unknown]
  - Hypotension [Recovered/Resolved]
  - Chills [Unknown]

NARRATIVE: CASE EVENT DATE: 201904
